FAERS Safety Report 19072795 (Version 1)
Quarter: 2021Q1

REPORT INFORMATION
  Report Type: Spontaneous
  Country: US (occurrence: US)
  Receive Date: 20210330
  Receipt Date: 20210330
  Transmission Date: 20210420
  Serious: Yes (Hospitalization)
  Sender: FDA-Public Use
  Company Number: None

PATIENT
  Sex: Female

DRUGS (13)
  1. BACTRIM [Concomitant]
     Active Substance: SULFAMETHOXAZOLE\TRIMETHOPRIM
  2. MYCOPHENOLIC [Concomitant]
     Active Substance: MYCOPHENOLIC ACID
  3. CARVEDILOL. [Concomitant]
     Active Substance: CARVEDILOL
  4. PREDNISONE. [Concomitant]
     Active Substance: PREDNISONE
  5. MAGNESIUM OXIDE. [Concomitant]
     Active Substance: MAGNESIUM OXIDE
  6. FLUCONAZOLE. [Concomitant]
     Active Substance: FLUCONAZOLE
  7. TACROLIMUS. [Concomitant]
     Active Substance: TACROLIMUS
  8. AMLODIPINE [Concomitant]
     Active Substance: AMLODIPINE BESYLATE
  9. OMEPRAZOLE. [Concomitant]
     Active Substance: OMEPRAZOLE
  10. VALGANCICLOVIR. [Concomitant]
     Active Substance: VALGANCICLOVIR
  11. FUROSEMIDE. [Concomitant]
     Active Substance: FUROSEMIDE
  12. MAVYRET [Suspect]
     Active Substance: GLECAPREVIR\PIBRENTASVIR
     Indication: EXPOSURE TO COMMUNICABLE DISEASE
     Route: 048
     Dates: start: 20210311
  13. HYDRALAZINE [Concomitant]
     Active Substance: HYDRALAZINE HYDROCHLORIDE

REACTIONS (3)
  - Nausea [None]
  - Renal transplant [None]
  - Liver transplant [None]
